FAERS Safety Report 11845723 (Version 1)
Quarter: 2015Q4

REPORT INFORMATION
  Report Type: Spontaneous
  Country: US (occurrence: US)
  Receive Date: 20151217
  Receipt Date: 20151217
  Transmission Date: 20160305
  Serious: No
  Sender: FDA-Public Use
  Company Number: US-NOVOPROD-431690

PATIENT
  Sex: Male

DRUGS (1)
  1. LEVEMIR [Suspect]
     Active Substance: INSULIN DETEMIR
     Indication: PRODUCT USED FOR UNKNOWN INDICATION
     Dosage: 52 U, QD
     Route: 058

REACTIONS (4)
  - Drug dose omission [Unknown]
  - Hypoacusis [Unknown]
  - Headache [Unknown]
  - Blood glucose decreased [Unknown]
